FAERS Safety Report 6897259-8 (Version None)
Quarter: 2010Q3

REPORT INFORMATION
  Report Type: 
  Country: None (occurrence: None)
  Receive Date: 20100802
  Receipt Date: 20070530
  Transmission Date: 20110219
  Serious: No
  Sender: FDA-Public Use
  Company Number: US-PFIZER INC-2007016170

PATIENT

DRUGS (4)
  1. PREGABALIN [Suspect]
     Indication: COMPLEX REGIONAL PAIN SYNDROME
     Route: 048
     Dates: start: 20061031, end: 20070123
  2. DOCUSATE [Concomitant]
  3. XANAX [Concomitant]
  4. CARDURA [Concomitant]

REACTIONS (1)
  - AMNESIA [None]
